FAERS Safety Report 17253154 (Version 3)
Quarter: 2020Q1

REPORT INFORMATION
  Report Type: Spontaneous
  Country: HU (occurrence: HU)
  Receive Date: 20200109
  Receipt Date: 20200224
  Transmission Date: 20200409
  Serious: Yes (Hospitalization, Other)
  Sender: FDA-Public Use
  Company Number: HU-MYLANLABS-2020M1002018

PATIENT
  Age: 15 Year
  Sex: Female

DRUGS (2)
  1. LAMOTRIGINE. [Suspect]
     Active Substance: LAMOTRIGINE
     Indication: EPILEPSY
     Dosage: 150 MILLIGRAM, QD
     Route: 065
     Dates: start: 201812
  2. VALPROIC ACID. [Concomitant]
     Active Substance: VALPROIC ACID
     Indication: EPILEPSY
     Dosage: 600 MILLIGRAM, QD

REACTIONS (11)
  - Limbic encephalitis [Unknown]
  - Chills [Unknown]
  - Hypoventilation [Unknown]
  - Quadriplegia [Unknown]
  - Hyponatraemia [Unknown]
  - Encephalitis autoimmune [Unknown]
  - Muscle spasticity [Unknown]
  - Monoparesis [Unknown]
  - Resting tremor [Unknown]
  - Respiratory distress [Unknown]
  - Drug reaction with eosinophilia and systemic symptoms [Recovered/Resolved]
